FAERS Safety Report 4661076-X (Version None)
Quarter: 2005Q2

REPORT INFORMATION
  Report Type: 
  Country: None (occurrence: None)
  Receive Date: 20050511
  Receipt Date: 20050426
  Transmission Date: 20051028
  Serious: Yes (Death)
  Sender: FDA-Public Use
  Company Number: 10980

PATIENT
  Age: 87 Year
  Sex: Male

DRUGS (1)
  1. METHOTREXATE [Suspect]
     Dosage: SO

REACTIONS (4)
  - NON-HODGKIN'S LYMPHOMA [None]
  - PNEUMONIA [None]
  - RADIATION INJURY [None]
  - SEPSIS [None]
